FAERS Safety Report 13378329 (Version 1)
Quarter: 2017Q1

REPORT INFORMATION
  Report Type: Report from Study
  Country: US (occurrence: US)
  Receive Date: 20170328
  Receipt Date: 20170328
  Transmission Date: 20170429
  Serious: Yes (Other)
  Sender: FDA-Public Use
  Company Number: US-PFIZER INC-2016468214

PATIENT
  Age: 63 Year
  Sex: Female

DRUGS (2)
  1. NITROGLYCERIN. [Suspect]
     Active Substance: NITROGLYCERIN
     Dosage: 0.64 MG (1/100 GRAIN)
     Route: 060
  2. NITROGLYCERIN. [Suspect]
     Active Substance: NITROGLYCERIN
     Indication: CHEST PAIN
     Dosage: 0.43 MG (1/150 GRAIN)
     Route: 060

REACTIONS (4)
  - Myocardial ischaemia [Unknown]
  - Hypotension [Unknown]
  - Condition aggravated [Unknown]
  - Sinus bradycardia [Unknown]
